FAERS Safety Report 23951896 (Version 1)
Quarter: 2024Q2

REPORT INFORMATION
  Report Type: Spontaneous
  Country: US (occurrence: US)
  Receive Date: 20240607
  Receipt Date: 20240607
  Transmission Date: 20240716
  Serious: Yes (Hospitalization)
  Sender: FDA-Public Use
  Company Number: US-BIOVITRUM-2024-US-008256

PATIENT
  Age: 74 Year
  Sex: Female

DRUGS (1)
  1. VONJO [Suspect]
     Active Substance: PACRITINIB
     Indication: Myeloproliferative neoplasm
     Dosage: TWICE DAILY (2X DAILY)
     Route: 048

REACTIONS (3)
  - Ankle fracture [Unknown]
  - Fall [Unknown]
  - Off label use [Not Recovered/Not Resolved]
